FAERS Safety Report 11211546 (Version 2)
Quarter: 2015Q3

REPORT INFORMATION
  Report Type: Spontaneous
  Country: AR (occurrence: AR)
  Receive Date: 20150623
  Receipt Date: 20150713
  Transmission Date: 20151125
  Serious: Yes (Other)
  Sender: FDA-Public Use
  Company Number: AR-SA-2015SA089693

PATIENT
  Age: 19 Year
  Sex: Female
  Weight: 46 kg

DRUGS (1)
  1. CEREZYME [Suspect]
     Active Substance: IMIGLUCERASE
     Indication: GAUCHER^S DISEASE
     Dosage: DOSE:1.08 UNIT(S)/KILOGRAM BODYWEIGHT
     Route: 041

REACTIONS (7)
  - Chest pain [Recovered/Resolved]
  - Respiratory tract infection [Unknown]
  - Cough [Recovered/Resolved]
  - Lung infiltration [Recovered/Resolved]
  - Pyrexia [Recovered/Resolved]
  - Pneumonia [Recovered/Resolved]
  - Bronchospasm [Unknown]

NARRATIVE: CASE EVENT DATE: 20150610
